FAERS Safety Report 4468283-X (Version None)
Quarter: 2004Q4

REPORT INFORMATION
  Report Type: 
  Country: None (occurrence: None)
  Receive Date: 20041007
  Receipt Date: 20040409
  Transmission Date: 20050328
  Serious: Yes (Hospitalization, Disabling, Other)
  Sender: FDA-Public Use
  Company Number: US-JNJFOC-20040402829

PATIENT
  Sex: Female
  Weight: 70.76 kg

DRUGS (6)
  1. DITROPAN XL [Suspect]
     Route: 049
  2. DITROPAN XL [Suspect]
     Indication: URINARY INCONTINENCE
     Dosage: GIVEN SAMPLES
     Route: 049
  3. ASPIRIN [Concomitant]
  4. METAGLIP [Concomitant]
     Dosage: 2.5/ 500 MG BID
  5. LIPITOR [Concomitant]
  6. NORVASC [Concomitant]

REACTIONS (37)
  - ABDOMINAL MASS [None]
  - ABDOMINAL PAIN [None]
  - ALANINE AMINOTRANSFERASE INCREASED [None]
  - AMMONIA INCREASED [None]
  - ASPARTATE AMINOTRANSFERASE INCREASED [None]
  - BACTERIAL INFECTION [None]
  - BILE DUCT STONE [None]
  - BILIARY TRACT DISORDER [None]
  - BLOOD ALKALINE PHOSPHATASE INCREASED [None]
  - BLOOD GLUCOSE INCREASED [None]
  - BLOOD POTASSIUM DECREASED [None]
  - CEREBRAL ATROPHY [None]
  - CHEST PAIN [None]
  - CHOLELITHIASIS [None]
  - COGNITIVE DISORDER [None]
  - CONFUSIONAL STATE [None]
  - DECREASED APPETITE [None]
  - DEMENTIA [None]
  - DISORIENTATION [None]
  - ENCEPHALOPATHY [None]
  - HALLUCINATION, VISUAL [None]
  - HEADACHE [None]
  - HYPERAMMONAEMIA [None]
  - INFECTION [None]
  - LARGE INTESTINE PERFORATION [None]
  - MASTOIDITIS [None]
  - MENTAL STATUS CHANGES [None]
  - NAUSEA [None]
  - NEUROPATHY PERIPHERAL [None]
  - OBSTRUCTIVE UROPATHY [None]
  - PHARYNGOLARYNGEAL PAIN [None]
  - PLEURAL EFFUSION [None]
  - RENAL CYST [None]
  - SEDATION [None]
  - URINARY TRACT INFECTION [None]
  - UROSEPSIS [None]
  - VOMITING [None]
